FAERS Safety Report 9551369 (Version 1)
Quarter: 2013Q3

REPORT INFORMATION
  Report Type: Spontaneous
  Country: US (occurrence: US)
  Receive Date: 20130925
  Receipt Date: 20130925
  Transmission Date: 20140515
  Serious: Yes (Other)
  Sender: FDA-Public Use
  Company Number: US-RANBAXY-2013US-73500

PATIENT
  Age: 25 Year
  Sex: Male

DRUGS (2)
  1. FLUOXETINE [Suspect]
     Indication: EXHIBITIONISM
     Dosage: 20MG PER DAY
     Route: 065
  2. FLUOXETINE [Suspect]
     Indication: OBSESSIVE-COMPULSIVE DISORDER

REACTIONS (1)
  - Condition aggravated [Recovering/Resolving]
